FAERS Safety Report 6131817-3 (Version None)
Quarter: 2009Q1

REPORT INFORMATION
  Report Type: 
  Country: None (occurrence: None)
  Receive Date: 20090323
  Receipt Date: 20090312
  Transmission Date: 20090719
  Serious: Yes (Death, Hospitalization, Other)
  Sender: FDA-Public Use
  Company Number: 2007-04189

PATIENT
  Age: 74 Year
  Sex: Male
  Weight: 49 kg

DRUGS (12)
  1. VELCADE [Suspect]
     Indication: MULTIPLE MYELOMA
     Dosage: 1.80 MG, INTRAVENOUS
     Route: 042
     Dates: start: 20070508, end: 20070511
  2. PREDNISOLONE [Concomitant]
  3. ROHYPNOL (FLUNITRAZEPAM) TABLET [Concomitant]
  4. URINORM (BENZBROMARONE) TABLET [Concomitant]
  5. NORVASC [Concomitant]
  6. METHYCOBAL (MECOBALAMIN) TABLET [Concomitant]
  7. AMITRIPTYLINE HCL [Concomitant]
  8. ITRIZOLE (ITRACONAZOLE) CAPSULE [Concomitant]
  9. BAKTAR (SULFAMETHOXAZOLE, TRIMETHOPRIM) TABLET [Concomitant]
  10. MAGNESIUM OXIDE (MAGNESIUM OXIDE) TABLET [Concomitant]
  11. YODEL (SENNA) TABLET [Concomitant]
  12. LOXONIN (LOXOPROFEN SODIUM) TABLET [Concomitant]

REACTIONS (4)
  - DISEASE PROGRESSION [None]
  - PLATELET COUNT DECREASED [None]
  - TUMOUR LYSIS SYNDROME [None]
  - VARICELLA [None]
